FAERS Safety Report 25107224 (Version 1)
Quarter: 2025Q1

REPORT INFORMATION
  Report Type: Spontaneous
  Country: FR (occurrence: FR)
  Receive Date: 20250321
  Receipt Date: 20250321
  Transmission Date: 20250408
  Serious: Yes (Other)
  Sender: ABBVIE
  Company Number: None

PATIENT
  Age: 12 Year
  Sex: Male

DRUGS (1)
  1. HUMIRA [Suspect]
     Active Substance: ADALIMUMAB
     Indication: Still^s disease
     Route: 058
     Dates: start: 20211006

REACTIONS (1)
  - Keratitis [Not Recovered/Not Resolved]

NARRATIVE: CASE EVENT DATE: 20231117
